FAERS Safety Report 5450438-9 (Version None)
Quarter: 2007Q3

REPORT INFORMATION
  Report Type: 
  Country: None (occurrence: None)
  Receive Date: 20070912
  Receipt Date: 20070830
  Transmission Date: 20080115
  Serious: Yes (Hospitalization)
  Sender: FDA-Public Use
  Company Number: JP-PFIZER INC-2007065789

PATIENT
  Sex: Female

DRUGS (3)
  1. MIGLITOL TABLET [Suspect]
     Indication: TYPE 2 DIABETES MELLITUS
     Dosage: DAILY DOSE:150MG
     Route: 048
     Dates: start: 20070507, end: 20070723
  2. MELBIN [Concomitant]
     Indication: TYPE 2 DIABETES MELLITUS
     Dosage: DAILY DOSE:1000MG
     Route: 048
     Dates: start: 20051219, end: 20070723
  3. AMARYL [Concomitant]
     Indication: TYPE 2 DIABETES MELLITUS
     Dosage: DAILY DOSE:2MG
     Route: 048
     Dates: start: 20070312, end: 20070723

REACTIONS (5)
  - DIARRHOEA [None]
  - GOITRE [None]
  - HYPOPROTEINAEMIA [None]
  - MALAISE [None]
  - PYREXIA [None]
